FAERS Safety Report 7281517-1 (Version None)
Quarter: 2011Q1

REPORT INFORMATION
  Report Type: 
  Country: None (occurrence: None)
  Receive Date: 20110208
  Receipt Date: 20110202
  Transmission Date: 20110831
  Serious: Yes (Other)
  Sender: FDA-Public Use
  Company Number: CH-PFIZER INC-2011023605

PATIENT
  Sex: Female
  Weight: 2.97 kg

DRUGS (6)
  1. DALACIN V CREAM [Concomitant]
     Indication: VAGINAL INFECTION
     Dosage: 300 MG, 1X/DAY
     Route: 064
     Dates: start: 20100520, end: 20100527
  2. ELEVIT PRONATAL [Concomitant]
     Indication: PREGNANCY
     Dosage: UNK
     Route: 064
     Dates: start: 20100325
  3. EFFEXOR [Suspect]
     Dosage: 150 MG, 1X/DAY
     Route: 064
  4. MAGNESIUM [Concomitant]
     Dosage: 12 MMOL, 1X/DAY
     Route: 064
  5. MAGNESIUM [Concomitant]
     Indication: CONSTIPATION
     Dosage: 12 MMOL, 1X/DAY
     Route: 064
     Dates: start: 20100506
  6. FOLIC ACID [Concomitant]
     Indication: PROPHYLAXIS
     Dosage: 0.4 MG, 1X/DAY
     Route: 064
     Dates: start: 20100309, end: 20100325

REACTIONS (2)
  - APGAR SCORE LOW [None]
  - DRUG EXPOSURE DURING PREGNANCY [None]
